FAERS Safety Report 8174049-X (Version None)
Quarter: 2012Q1

REPORT INFORMATION
  Report Type: 
  Country: None (occurrence: None)
  Receive Date: 20120229
  Receipt Date: 20120215
  Transmission Date: 20120608
  Serious: Yes (Disabling)
  Sender: FDA-Public Use
  Company Number: AT-WATSON-2012-02768

PATIENT
  Age: 92 Year
  Sex: Male
  Weight: 67 kg

DRUGS (5)
  1. VENORUTON [Concomitant]
     Indication: PRODUCT USED FOR UNKNOWN INDICATION
     Dosage: 300 MG, UNK
     Route: 065
     Dates: start: 20090101
  2. OLEOVIT D3 [Concomitant]
     Indication: PRODUCT USED FOR UNKNOWN INDICATION
     Dosage: UNK
     Route: 048
     Dates: start: 20090101
  3. SIMVASTATIN [Concomitant]
     Indication: PROPHYLAXIS
     Dosage: 20 MG, UNK
     Route: 065
     Dates: start: 20090101
  4. PRONERV [Concomitant]
     Indication: PRODUCT USED FOR UNKNOWN INDICATION
     Dosage: UNK
     Route: 065
     Dates: start: 20090101
  5. OXYBUTYNIN [Suspect]
     Indication: URINARY INCONTINENCE
     Dosage: 3.9 MG/ 1DAY
     Route: 062
     Dates: start: 20110601, end: 20110826

REACTIONS (5)
  - HALLUCINATION, VISUAL [None]
  - ANXIETY [None]
  - DISORIENTATION [None]
  - COGNITIVE DISORDER [None]
  - PARKINSON'S DISEASE [None]
